FAERS Safety Report 8309238-4 (Version None)
Quarter: 2012Q2

REPORT INFORMATION
  Report Type: 
  Country: None (occurrence: None)
  Receive Date: 20120424
  Receipt Date: 20120417
  Transmission Date: 20120825
  Serious: Yes (Hospitalization)
  Sender: FDA-Public Use
  Company Number: JP-MERCK-1202USA02733

PATIENT
  Age: 64 Year
  Sex: Female

DRUGS (3)
  1. FOSAMAX [Suspect]
     Indication: OSTEOPOROSIS
     Route: 048
     Dates: start: 20081127, end: 20120208
  2. PROTECADIN [Suspect]
     Indication: PROPHYLAXIS
     Route: 048
     Dates: start: 20080917, end: 20120208
  3. MOBIC [Suspect]
     Indication: ARTHRALGIA
     Route: 048
     Dates: start: 20080917, end: 20120208

REACTIONS (1)
  - FEMORAL NECK FRACTURE [None]
